FAERS Safety Report 15755817 (Version 1)
Quarter: 2018Q4

REPORT INFORMATION
  Report Type: Spontaneous
  Country: US (occurrence: US)
  Receive Date: 20181206
  Receipt Date: 20181206
  Transmission Date: 20190205
  Serious: No
  Sender: FDA-Public Use
  Company Number: None

PATIENT
  Age: 53 Year
  Sex: Female

DRUGS (1)
  1. TALTZ [Suspect]
     Active Substance: IXEKIZUMAB
     Indication: PSORIASIS
     Dosage: ?          OTHER DOSE:160MG (2 SYRINGES);?THEN 80 MG (1 SYRINGE) AT WEEK 2?
     Route: 058
     Dates: start: 20180731

REACTIONS (1)
  - Bronchitis [None]
